FAERS Safety Report 4587081-X (Version None)
Quarter: 2005Q1

REPORT INFORMATION
  Report Type: 
  Country: None (occurrence: None)
  Receive Date: 20050214
  Receipt Date: 20050128
  Transmission Date: 20050727
  Serious: Yes (Hospitalization)
  Sender: FDA-Public Use
  Company Number: 430001E05ITA

PATIENT
  Age: 32 Year
  Sex: Female

DRUGS (2)
  1. NOVANTRONE [Suspect]
     Indication: ACUTE PROMYELOCYTIC LEUKAEMIA
     Dosage: 16MG, 1 IN 1 DAYS; 80 MG, 1 IN 1 DAYS
     Dates: start: 20040727, end: 20040731
  2. ETOPOSIDE [Suspect]
     Indication: ACUTE PROMYELOCYTIC LEUKAEMIA
     Dosage: 160 MG, 1 IN 1 DAYS
     Dates: start: 20040727, end: 20040731

REACTIONS (2)
  - PANCYTOPENIA [None]
  - PYREXIA [None]
